FAERS Safety Report 7213136-7 (Version None)
Quarter: 2011Q1

REPORT INFORMATION
  Report Type: 
  Country: None (occurrence: None)
  Receive Date: 20110106
  Receipt Date: 20101228
  Transmission Date: 20110831
  Serious: Yes (Hospitalization)
  Sender: FDA-Public Use
  Company Number: BR-ASTRAZENECA-2010SE61279

PATIENT
  Age: 55 Year
  Sex: Female

DRUGS (12)
  1. ATENOLOL [Suspect]
     Indication: HYPERTENSION
     Route: 048
     Dates: start: 20090101
  2. MODURETIC 5-50 [Concomitant]
     Indication: HYPERTENSION
     Route: 048
     Dates: end: 20090101
  3. PREDNISONE [Concomitant]
     Indication: SYSTEMIC LUPUS ERYTHEMATOSUS
     Route: 048
     Dates: start: 19970101
  4. ARADOIS H [Concomitant]
  5. SOMALGIN CARDIO [Concomitant]
  6. CRESTOR [Suspect]
     Indication: HYPERCHOLESTEROLAEMIA
     Route: 048
     Dates: start: 20101001
  7. SIMVASTATIN [Suspect]
     Indication: HYPERCHOLESTEROLAEMIA
     Route: 048
     Dates: start: 20090101
  8. UNKNOWN [Concomitant]
     Indication: OSTEOARTHRITIS
     Dosage: AS REQUIRED
     Route: 048
     Dates: end: 20101001
  9. OMEPRAZOLE [Suspect]
     Indication: GASTRITIS PROPHYLAXIS
     Route: 048
     Dates: start: 20050101
  10. RIVOTRIL [Concomitant]
     Indication: ANEURYSM
     Route: 048
  11. FLUOXETINE HCL [Concomitant]
     Indication: ANXIETY
     Route: 048
  12. ARTOGLICO [Concomitant]

REACTIONS (11)
  - ABDOMINAL PAIN UPPER [None]
  - MYALGIA [None]
  - ARTHRALGIA [None]
  - NAUSEA [None]
  - MALAISE [None]
  - HEADACHE [None]
  - ACUTE MYOCARDIAL INFARCTION [None]
  - MUSCLE SPASMS [None]
  - HYPERTENSION [None]
  - HYPERCHOLESTEROLAEMIA [None]
  - OSTEOARTHRITIS [None]
